FAERS Safety Report 6440000-3 (Version None)
Quarter: 2009Q4

REPORT INFORMATION
  Report Type: 
  Country: None (occurrence: None)
  Receive Date: 20091110
  Receipt Date: 20091103
  Transmission Date: 20100525
  Serious: Yes (Hospitalization)
  Sender: FDA-Public Use
  Company Number: 20097631

PATIENT
  Sex: Male

DRUGS (1)
  1. LIORESAL [Suspect]
     Indication: MUSCLE SPASTICITY
     Dosage: MSC, DAILY, INTRATHECAL
     Route: 037

REACTIONS (4)
  - GASTROINTESTINAL MOTILITY DISORDER [None]
  - MEDICAL DEVICE COMPLICATION [None]
  - NO THERAPEUTIC RESPONSE [None]
  - VOMITING [None]
